FAERS Safety Report 15498802 (Version 1)
Quarter: 2018Q4

REPORT INFORMATION
  Report Type: Spontaneous
  Country: GB (occurrence: GB)
  Receive Date: 20181015
  Receipt Date: 20181015
  Transmission Date: 20190205
  Serious: Yes (Other)
  Sender: FDA-Public Use
  Company Number: GB-ELI_LILLY_AND_COMPANY-GB201810004717

PATIENT
  Age: 29 Year
  Sex: Female

DRUGS (9)
  1. DIAZEPAM. [Concomitant]
     Active Substance: DIAZEPAM
     Indication: PRODUCT USED FOR UNKNOWN INDICATION
     Dosage: UNK, UNKNOWN
     Route: 065
  2. OLANZAPINE. [Suspect]
     Active Substance: OLANZAPINE
     Indication: PRODUCT USED FOR UNKNOWN INDICATION
     Dosage: UNK UNK, UNKNOWN
     Route: 065
     Dates: start: 201711
  3. QUETIAPINE. [Suspect]
     Active Substance: QUETIAPINE
     Indication: PRODUCT USED FOR UNKNOWN INDICATION
     Dosage: 700 MG, DAILY
     Route: 065
     Dates: start: 201606
  4. QUETIAPINE. [Suspect]
     Active Substance: QUETIAPINE
     Dosage: UNK UNK, UNKNOWN
     Route: 065
     Dates: start: 201809
  5. RISPERIDONE. [Suspect]
     Active Substance: RISPERIDONE
     Dosage: 1MG AM AND 2MG AT NIGHT
     Route: 065
  6. QUETIAPINE. [Suspect]
     Active Substance: QUETIAPINE
     Dosage: UNK UNK, UNKNOWN
     Route: 065
     Dates: start: 201711
  7. ARIPIPRAZOLE. [Suspect]
     Active Substance: ARIPIPRAZOLE
     Dosage: 10 MG, DAILY
     Route: 065
     Dates: start: 201606
  8. RISPERIDONE. [Suspect]
     Active Substance: RISPERIDONE
     Indication: PRODUCT USED FOR UNKNOWN INDICATION
     Dosage: 4 MG, DAILY
     Route: 065
     Dates: start: 201808
  9. ARIPIPRAZOLE. [Suspect]
     Active Substance: ARIPIPRAZOLE
     Indication: PRODUCT USED FOR UNKNOWN INDICATION
     Dosage: 5 MG, UNKNOWN
     Route: 065
     Dates: start: 201605

REACTIONS (8)
  - Restlessness [Unknown]
  - Psychotic disorder [Unknown]
  - Dizziness [Unknown]
  - Akathisia [Unknown]
  - Drug intolerance [Unknown]
  - Agitation [Unknown]
  - Malaise [Unknown]
  - Suicidal ideation [Unknown]

NARRATIVE: CASE EVENT DATE: 201606
